FAERS Safety Report 6659555-9 (Version None)
Quarter: 2010Q1

REPORT INFORMATION
  Report Type: 
  Country: None (occurrence: None)
  Receive Date: 20100322
  Receipt Date: 20090116
  Transmission Date: 20100710
  Serious: Yes (Other)
  Sender: FDA-Public Use
  Company Number: 2009US-20680

PATIENT
  Age: 28 Year
  Sex: Female

DRUGS (1)
  1. ISOTRETINOIN [Suspect]
     Indication: ACNE
     Dosage: 80 MG, QD, ORAL
     Route: 048
     Dates: end: 20081001

REACTIONS (3)
  - ARTHRALGIA [None]
  - FATIGUE [None]
  - SWELLING FACE [None]
